FAERS Safety Report 8765841 (Version 1)
Quarter: 2012Q4

REPORT INFORMATION
  Report Type: 
  Country: AU (occurrence: AU)
  Receive Date: 20120914
  Receipt Date: 20120914
  Transmission Date: 20130627
  Serious: Yes (Other)
  Sender: FDA-Public Use
  Company Number: PHHY2012AU075905

PATIENT
  Sex: Female

DRUGS (12)
  1. ACLASTA [Suspect]
     Dosage: 5 mg, UNK
     Route: 042
     Dates: start: 20090720
  2. DUROGESIC [Concomitant]
     Dosage: 2.1 mg, apply every 3/7 (12mcg/hr)
     Route: 062
  3. DUROGESIC [Concomitant]
     Dosage: 8.4 mg, apply every 3/7 (50mcg/hr)
     Route: 062
  4. ENDONE [Concomitant]
     Dosage: 5 mg, Q4H, m.d.u.
     Route: 048
  5. FUNGILIN [Concomitant]
     Dosage: 1 DF, Q4H
     Route: 002
  6. LIPITOR                                 /NET/ [Concomitant]
     Dosage: 1 DF, QD
  7. NEO-B12 [Concomitant]
     Route: 030
  8. NILSTAT [Concomitant]
     Dosage: 1 ml, QID buccal muscle
     Route: 048
  9. NITROLINGUAL-PUMPSPRAY [Concomitant]
     Dosage: 1 DF, PRN
  10. PANAMAX [Concomitant]
     Dosage: 2 DF, PRN
  11. SIFROL [Concomitant]
     Dosage: 2 DF, nocte
     Route: 048
  12. VENTOLINE INHALATOR [Concomitant]
     Dosage: 2 DF, 2 Puffs, Q4H, PRN

REACTIONS (19)
  - Asthma [Unknown]
  - Pneumonia [Unknown]
  - Osteoporotic fracture [Unknown]
  - Sjogren^s syndrome [Unknown]
  - Femur fracture [Unknown]
  - Uterine leiomyoma [Unknown]
  - Restless legs syndrome [Unknown]
  - Urinary tract infection [Unknown]
  - Vitamin D deficiency [Unknown]
  - Pyrexia [Unknown]
  - Tenderness [Unknown]
  - Osteoarthritis [Unknown]
  - Myalgia [Unknown]
  - Influenza like illness [Unknown]
  - Neck pain [Unknown]
  - Musculoskeletal stiffness [Unknown]
  - Pain in extremity [Unknown]
  - Oedema peripheral [Unknown]
  - Headache [Unknown]
